FAERS Safety Report 5480534-1 (Version None)
Quarter: 2007Q4

REPORT INFORMATION
  Report Type: 
  Country: None (occurrence: None)
  Receive Date: 20071009
  Receipt Date: 20070928
  Transmission Date: 20080405
  Serious: Yes (Disabling)
  Sender: FDA-Public Use
  Company Number: US-GENENTECH-246137

PATIENT
  Sex: Female
  Weight: 63.492 kg

DRUGS (9)
  1. HERCEPTIN [Suspect]
     Indication: BREAST CANCER
     Dosage: UNK, 1/WEEK
     Route: 042
     Dates: start: 20070405, end: 20070719
  2. HERCEPTIN [Suspect]
     Dosage: UNK, Q3W
     Route: 042
  3. TAXOL [Suspect]
     Indication: DRUG USE FOR UNKNOWN INDICATION
     Dates: start: 20070401
  4. TAXOL [Suspect]
     Indication: BREAST CANCER
  5. ADRIAMYCIN PFS [Suspect]
     Indication: DRUG USE FOR UNKNOWN INDICATION
  6. CYTOXAN [Suspect]
     Indication: DRUG USE FOR UNKNOWN INDICATION
  7. PRILOSEC [Concomitant]
     Indication: DRUG USE FOR UNKNOWN INDICATION
     Dosage: 20 MG, UNK
  8. COZAAR [Concomitant]
     Indication: DRUG USE FOR UNKNOWN INDICATION
     Dosage: 50 MG, UNK
  9. ATENOLOL [Concomitant]
     Indication: DRUG USE FOR UNKNOWN INDICATION
     Dosage: 25 MG, UNK

REACTIONS (3)
  - DEAFNESS [None]
  - MEDICATION ERROR [None]
  - TINNITUS [None]
